FAERS Safety Report 20066404 (Version 1)
Quarter: 2021Q4

REPORT INFORMATION
  Report Type: Spontaneous
  Country: FR (occurrence: FR)
  Receive Date: 20211115
  Receipt Date: 20211115
  Transmission Date: 20220303
  Serious: Yes (Hospitalization, Congenital Anomaly, Other)
  Sender: FDA-Public Use
  Company Number: FR-ABBVIE-21K-056-4159756-00

PATIENT
  Age: 2 Year
  Sex: Female
  Weight: 2.96 kg

DRUGS (2)
  1. VALPROATE SODIUM [Suspect]
     Active Substance: VALPROATE SODIUM
     Indication: Maternal exposure timing unspecified
     Route: 064
  2. VALPROATE SODIUM [Suspect]
     Active Substance: VALPROATE SODIUM
     Route: 064

REACTIONS (50)
  - Nasopharyngitis [Unknown]
  - Rhinitis [Unknown]
  - Bronchiolitis [Unknown]
  - Cough [Unknown]
  - Laryngitis [Unknown]
  - Nasopharyngitis [Unknown]
  - Appendicitis [Unknown]
  - Cough [Unknown]
  - Otitis media [Unknown]
  - Otitis media acute [Unknown]
  - Tracheobronchitis [Unknown]
  - Dysmorphism [Unknown]
  - Ear congestion [Unknown]
  - Atrial septal defect [Unknown]
  - Ventricular septal defect [Unknown]
  - Speech disorder developmental [Unknown]
  - Tooth hypoplasia [Unknown]
  - Tooth development disorder [Unknown]
  - Cardiac murmur [Unknown]
  - Knee deformity [Unknown]
  - Disturbance in social behaviour [Unknown]
  - Intelligence test abnormal [Unknown]
  - Language disorder [Unknown]
  - Tympanic membrane perforation [Unknown]
  - Tympanic membrane disorder [Unknown]
  - Developmental hip dysplasia [Unknown]
  - Alveolar osteitis [Unknown]
  - Lymphadenopathy [Unknown]
  - Deformity thorax [Unknown]
  - Anisomastia [Unknown]
  - Intellectual disability [Unknown]
  - Personal relationship issue [Unknown]
  - Disturbance in attention [Unknown]
  - Affect lability [Unknown]
  - Executive dysfunction [Unknown]
  - Disturbance in attention [Unknown]
  - Adenoidectomy [Unknown]
  - Lordosis [Unknown]
  - Foot deformity [Unknown]
  - Joint laxity [Unknown]
  - Congenital hand malformation [Unknown]
  - Educational problem [Unknown]
  - Disturbance in social behaviour [Unknown]
  - Atrial septal defect [Unknown]
  - Infected cyst [Unknown]
  - Breast cyst [Unknown]
  - Deformity thorax [Unknown]
  - Anisomastia [Unknown]
  - Memory impairment [Unknown]
  - Foetal exposure during pregnancy [Unknown]

NARRATIVE: CASE EVENT DATE: 19961123
